FAERS Safety Report 10464642 (Version 3)
Quarter: 2014Q4

REPORT INFORMATION
  Report Type: Report from Study
  Country: TW (occurrence: TW)
  Receive Date: 20140919
  Receipt Date: 20141028
  Transmission Date: 20150528
  Serious: Yes (Hospitalization, Other)
  Sender: FDA-Public Use
  Company Number: TW-ABBVIE-14K-153-1269471-00

PATIENT
  Age: 38 Year
  Sex: Male
  Weight: 50 kg

DRUGS (8)
  1. PROTASE EC CAP [Concomitant]
     Indication: CROHN^S DISEASE
     Route: 048
     Dates: start: 20131209
  2. KASCOAL [Concomitant]
     Indication: CROHN^S DISEASE
     Route: 048
     Dates: start: 20140129
  3. MOPRIDE [Concomitant]
     Indication: CROHN^S DISEASE
     Route: 048
     Dates: start: 20131209
  4. HUMIRA [Suspect]
     Active Substance: ADALIMUMAB
     Route: 058
     Dates: start: 20131209, end: 20140804
  5. HUMIRA [Suspect]
     Active Substance: ADALIMUMAB
     Indication: CROHN^S DISEASE
     Route: 065
     Dates: end: 201208
  6. HUMIRA [Suspect]
     Active Substance: ADALIMUMAB
     Route: 065
     Dates: start: 20140808
  7. HUMIRA [Suspect]
     Active Substance: ADALIMUMAB
     Route: 065
     Dates: end: 20130910
  8. HUMIRA [Suspect]
     Active Substance: ADALIMUMAB
     Route: 065
     Dates: start: 20140909

REACTIONS (10)
  - Blood urea increased [Unknown]
  - Hospitalisation [Unknown]
  - White blood cell count decreased [Recovered/Resolved]
  - Red blood cell count decreased [Not Recovered/Not Resolved]
  - Herpes zoster [Recovered/Resolved]
  - Crohn^s disease [Recovered/Resolved]
  - Crohn^s disease [Not Recovered/Not Resolved]
  - Herpes zoster [Not Recovered/Not Resolved]
  - Blood urea decreased [Not Recovered/Not Resolved]
  - Protein total decreased [Recovered/Resolved]

NARRATIVE: CASE EVENT DATE: 2012
